FAERS Safety Report 14114411 (Version 1)
Quarter: 2017Q4

REPORT INFORMATION
  Report Type: Spontaneous
  Country: US (occurrence: US)
  Receive Date: 20171023
  Receipt Date: 20171023
  Transmission Date: 20180321
  Serious: No
  Sender: FDA-Public Use
  Company Number: US-PFIZER INC-2017454458

PATIENT
  Sex: Female

DRUGS (1)
  1. TAPAZOLE [Suspect]
     Active Substance: METHIMAZOLE
     Dosage: 10 MG, DAILY

REACTIONS (2)
  - Drug effect incomplete [Unknown]
  - Blood immunoglobulin G decreased [Unknown]
